FAERS Safety Report 7805413-3 (Version None)
Quarter: 2011Q4

REPORT INFORMATION
  Report Type: 
  Country: None (occurrence: None)
  Receive Date: 20111010
  Receipt Date: 20111005
  Transmission Date: 20120403
  Serious: Yes (Hospitalization)
  Sender: FDA-Public Use
  Company Number: CA-ABBOTT-11P-028-0860603-00

PATIENT
  Sex: Female
  Weight: 54.48 kg

DRUGS (2)
  1. HUMIRA [Suspect]
     Indication: CROHN'S DISEASE
     Route: 058
     Dates: start: 20050824
  2. SUPEUDOL [Concomitant]
     Indication: PAIN
     Route: 048
     Dates: start: 20010101

REACTIONS (7)
  - MALAISE [None]
  - BILE DUCT OBSTRUCTION [None]
  - ESCHERICHIA INFECTION [None]
  - HEPATITIS [None]
  - ABDOMINAL PAIN LOWER [None]
  - INFLAMMATION [None]
  - ABDOMINAL DISTENSION [None]
